FAERS Safety Report 18402264 (Version 3)
Quarter: 2020Q4

REPORT INFORMATION
  Report Type: Spontaneous
  Country: DE (occurrence: DE)
  Receive Date: 20201019
  Receipt Date: 20201027
  Transmission Date: 20210114
  Serious: Yes (Hospitalization, Other)
  Sender: FDA-Public Use
  Company Number: NVSC2020DE262013

PATIENT
  Age: 76 Year
  Sex: Female

DRUGS (8)
  1. BEOVU [Suspect]
     Active Substance: BROLUCIZUMAB-DBLL
     Dosage: 0.05 ML, ONCE/SINGLE (RIGHT EYE)
     Route: 031
     Dates: start: 20200729
  2. BEOVU [Suspect]
     Active Substance: BROLUCIZUMAB-DBLL
     Dosage: 0.05 ML, ONCE/SINGLE (LEFT EYE)
     Route: 031
     Dates: start: 20200611
  3. BEOVU [Suspect]
     Active Substance: BROLUCIZUMAB-DBLL
     Dosage: 0.05 ML, ONCE/SINGLE (LEFT EYE)
     Route: 031
     Dates: start: 20200709
  4. BEOVU [Suspect]
     Active Substance: BROLUCIZUMAB-DBLL
     Indication: NEOVASCULAR AGE-RELATED MACULAR DEGENERATION
     Dosage: 0.05 ML, ONCE/SINGLE (RIGHT EYE)
     Route: 031
     Dates: start: 20200505
  5. BEOVU [Suspect]
     Active Substance: BROLUCIZUMAB-DBLL
     Dosage: 0.05 ML, ONCE/SINGLE (LEFT EYE)
     Route: 031
     Dates: start: 20200514
  6. BEOVU [Suspect]
     Active Substance: BROLUCIZUMAB-DBLL
     Dosage: 0.05 ML, ONCE/SINGLE (RIGHT EYE)
     Route: 031
     Dates: start: 20200602
  7. BEOVU [Suspect]
     Active Substance: BROLUCIZUMAB-DBLL
     Dosage: 0.05 ML, ONCE/SINGLE (RIGHT EYE)
     Route: 031
     Dates: start: 20200701
  8. BEOVU [Suspect]
     Active Substance: BROLUCIZUMAB-DBLL
     Dosage: UNK (BOTH EYES)
     Route: 031
     Dates: start: 202009, end: 202009

REACTIONS (9)
  - Blindness transient [Recovering/Resolving]
  - Intraocular pressure increased [Recovered/Resolved]
  - Blindness unilateral [Unknown]
  - Macular oedema [Unknown]
  - Vitreous haze [Unknown]
  - Vitreous opacities [Recovering/Resolving]
  - Chorioretinitis [Unknown]
  - Uveitis [Unknown]
  - Cataract [Unknown]

NARRATIVE: CASE EVENT DATE: 20200901
